FAERS Safety Report 8486688-7 (Version None)
Quarter: 2012Q3

REPORT INFORMATION
  Report Type: 
  Country: None (occurrence: None)
  Receive Date: 20120704
  Receipt Date: 20120613
  Transmission Date: 20120928
  Serious: No
  Sender: FDA-Public Use
  Company Number: US-ASTRAZENECA-2011SE41535

PATIENT
  Age: 48 Year
  Sex: Female
  Weight: 67.6 kg

DRUGS (37)
  1. IMITREX [Concomitant]
     Indication: MIGRAINE
  2. IMITREX [Concomitant]
     Dates: start: 20060101
  3. TOMARADOLE HCL [Concomitant]
  4. NIFEDIPINE [Concomitant]
  5. ARTHROTEC [Concomitant]
     Dates: start: 20060101
  6. TOPROL-XL [Concomitant]
     Dates: start: 20100101
  7. FOLIC ACID [Concomitant]
     Dates: start: 20100101
  8. NEXIUM [Suspect]
     Route: 048
     Dates: start: 20011201, end: 20030701
  9. HYDROCLORAZAZIDE/HCTZ [Concomitant]
     Dates: start: 20020516
  10. LYRICA [Concomitant]
     Dates: start: 20100101
  11. PRILOSEC [Concomitant]
  12. NIZATIDIZINE/AXID [Concomitant]
  13. SUDAFED 12 HOUR [Concomitant]
     Dates: start: 20060101
  14. GLYSET [Concomitant]
     Dates: start: 20100101
  15. LACTULOSE [Concomitant]
     Dates: start: 20100101
  16. NEXIUM [Suspect]
     Indication: GASTROOESOPHAGEAL REFLUX DISEASE
     Route: 048
  17. NEXIUM [Suspect]
     Route: 048
     Dates: start: 20100101
  18. PROTONIX [Concomitant]
  19. HYDROCLORAZAZIDE/HCTZ [Concomitant]
     Indication: BLOOD PRESSURE
  20. ZOFREN [Concomitant]
  21. POTASSIUM CHLORIDE/K DUR [Concomitant]
     Dates: start: 20020315
  22. PEPCID [Concomitant]
     Dates: start: 20020516
  23. VITAMIN D [Concomitant]
     Indication: VITAMIN D DEFICIENCY
  24. PROPO N/APAP/DARVOCET [Concomitant]
     Dosage: 100-650
     Dates: start: 20020328
  25. PROPO N/APAP/DARVOCET [Concomitant]
     Dates: start: 20060101
  26. CYCLOBENZAR [Concomitant]
  27. PEPCID [Concomitant]
     Dates: start: 20060101
  28. CALCIUM CARBONATE [Concomitant]
     Indication: CALCIUM DEFICIENCY
     Dosage: 500/200 D-3
     Dates: start: 20100101
  29. COMPAZINE [Concomitant]
  30. NEXIUM [Suspect]
     Route: 048
     Dates: start: 20020405
  31. NEXIUM [Suspect]
     Route: 048
     Dates: start: 20030101, end: 20110101
  32. CERALAFATE [Concomitant]
     Dates: start: 20100101
  33. KADOR [Concomitant]
  34. ZYRTEC [Concomitant]
     Indication: MULTIPLE ALLERGIES
  35. M.V.I. [Concomitant]
     Dates: start: 20060101
  36. OMEGA-3-ACID ETHYL ESTERS [Concomitant]
  37. FISH OIL [Concomitant]
     Dates: start: 20100101

REACTIONS (7)
  - VOMITING [None]
  - MULTIPLE FRACTURES [None]
  - VITAMIN D DEFICIENCY [None]
  - OSTEOPENIA [None]
  - OSTEOPOROSIS [None]
  - INTERVERTEBRAL DISC DEGENERATION [None]
  - CALCIUM DEFICIENCY [None]
